FAERS Safety Report 5816915-3 (Version None)
Quarter: 2008Q3

REPORT INFORMATION
  Report Type: 
  Country: None (occurrence: None)
  Receive Date: 20080722
  Receipt Date: 20080703
  Transmission Date: 20090109
  Serious: Yes (Hospitalization)
  Sender: FDA-Public Use
  Company Number: FR-BAYER-200821786GPV

PATIENT
  Age: 43 Year
  Sex: Female

DRUGS (5)
  1. IZILOX [Suspect]
     Indication: TUBERCULOSIS
     Route: 048
     Dates: start: 20080421, end: 20080504
  2. RIMIFON [Concomitant]
     Indication: TUBERCULOSIS
     Route: 065
     Dates: start: 20080314
  3. PIRILENE [Concomitant]
     Indication: TUBERCULOSIS
     Route: 065
     Dates: start: 20080314
  4. MYAMBUTOL [Concomitant]
     Indication: TUBERCULOSIS
     Route: 065
     Dates: start: 20080314
  5. ANSATIPIN [Concomitant]
     Indication: TUBERCULOSIS
     Route: 065
     Dates: start: 20080314

REACTIONS (3)
  - CYTOLYTIC HEPATITIS [None]
  - HYPERTHERMIA [None]
  - RASH MACULO-PAPULAR [None]
